FAERS Safety Report 8007368-8 (Version None)
Quarter: 2011Q4

REPORT INFORMATION
  Report Type: 
  Country: None (occurrence: None)
  Receive Date: 20111227
  Receipt Date: 20111220
  Transmission Date: 20120403
  Serious: Yes (Other)
  Sender: FDA-Public Use
  Company Number: JP-BAYER-2011-122563

PATIENT
  Age: 54 Year
  Sex: Male

DRUGS (1)
  1. EOB PRIMOVIST [Suspect]
     Indication: NUCLEAR MAGNETIC RESONANCE IMAGING
     Dosage: UNK
     Route: 042
     Dates: start: 20111220, end: 20111220

REACTIONS (2)
  - TREMOR [None]
  - DEPRESSED LEVEL OF CONSCIOUSNESS [None]
